FAERS Safety Report 4674268-0 (Version None)
Quarter: 2005Q2

REPORT INFORMATION
  Report Type: 
  Country: None (occurrence: None)
  Receive Date: 20050524
  Receipt Date: 20050511
  Transmission Date: 20051028
  Serious: Yes (Other)
  Sender: FDA-Public Use
  Company Number: USA050597886

PATIENT
  Age: 6 Year
  Sex: Male
  Weight: 20 kg

DRUGS (1)
  1. STRATTERA [Suspect]
     Dosage: 25 MG DAY

REACTIONS (5)
  - AGGRESSION [None]
  - INSOMNIA [None]
  - MANIA [None]
  - PHYSICAL ASSAULT [None]
  - PYROMANIA [None]
